FAERS Safety Report 7096917-2 (Version None)
Quarter: 2010Q4

REPORT INFORMATION
  Report Type: 
  Country: None (occurrence: None)
  Receive Date: 20101111
  Receipt Date: 20100225
  Transmission Date: 20110411
  Serious: No
  Sender: FDA-Public Use
  Company Number: US-KINGPHARMUSA00001-K201000236

PATIENT
  Sex: Female
  Weight: 90.703 kg

DRUGS (6)
  1. FLECTOR [Suspect]
     Indication: BACK PAIN
     Dosage: 1 PATCH FOR 6 HOURS
     Route: 061
     Dates: start: 20100224, end: 20100224
  2. UNSPECIFIED BLOOD PRESSURE MEDS [Concomitant]
     Indication: BLOOD PRESSURE
  3. AVAPRO [Concomitant]
  4. VICODIN [Concomitant]
     Indication: BACK PAIN
     Dosage: UNK
  5. SKELAXIN [Concomitant]
     Indication: BACK PAIN
     Dosage: 800 MG, TID
  6. ANTIDEPRESSANTS [Concomitant]
     Indication: DEPRESSION

REACTIONS (6)
  - DECREASED APPETITE [None]
  - HEADACHE [None]
  - MEMORY IMPAIRMENT [None]
  - NAUSEA [None]
  - RETCHING [None]
  - STRESS [None]
